FAERS Safety Report 15800839 (Version 1)
Quarter: 2019Q1

REPORT INFORMATION
  Report Type: Spontaneous
  Country: GB (occurrence: GB)
  Receive Date: 20190109
  Receipt Date: 20190109
  Transmission Date: 20190417
  Serious: Yes (Hospitalization)
  Sender: FDA-Public Use
  Company Number: GB-ROCHE-2240973

PATIENT
  Age: 54 Year
  Sex: Female
  Weight: 101.9 kg

DRUGS (5)
  1. FILGRASTIM [Concomitant]
     Active Substance: FILGRASTIM
     Route: 065
  2. PERTUZUMAB. [Suspect]
     Active Substance: PERTUZUMAB
     Indication: BREAST CANCER
     Route: 042
     Dates: start: 20180821, end: 20181023
  3. DOCETAXEL. [Concomitant]
     Active Substance: DOCETAXEL
     Route: 065
  4. DEXAMETHASONE. [Concomitant]
     Active Substance: DEXAMETHASONE
     Route: 065
  5. TRASTUZUMAB. [Concomitant]
     Active Substance: TRASTUZUMAB
     Route: 065

REACTIONS (3)
  - Acute interstitial pneumonitis [Recovered/Resolved]
  - Dyspnoea [Recovering/Resolving]
  - Pyrexia [Recovering/Resolving]

NARRATIVE: CASE EVENT DATE: 20181105
